FAERS Safety Report 14268827 (Version 1)
Quarter: 2017Q4

REPORT INFORMATION
  Report Type: Spontaneous
  Country: US (occurrence: US)
  Receive Date: 20171211
  Receipt Date: 20171211
  Transmission Date: 20180321
  Serious: No
  Sender: FDA-Public Use
  Company Number: US-009507513-1711USA008658

PATIENT
  Sex: Female

DRUGS (1)
  1. REMERON [Suspect]
     Active Substance: MIRTAZAPINE
     Dosage: UNK
     Route: 048
     Dates: start: 20170904, end: 20171104

REACTIONS (6)
  - Pruritus [Recovered/Resolved]
  - Hallucination, tactile [Recovering/Resolving]
  - Hallucination, olfactory [Recovered/Resolved]
  - Nightmare [Recovering/Resolving]
  - Hallucination, visual [Recovering/Resolving]
  - Anxiety [Recovering/Resolving]

NARRATIVE: CASE EVENT DATE: 20171106
